FAERS Safety Report 8438336-X (Version None)
Quarter: 2012Q2

REPORT INFORMATION
  Report Type: 
  Country: None (occurrence: None)
  Receive Date: 20120614
  Receipt Date: 20120614
  Transmission Date: 20120825
  Serious: Yes (Other)
  Sender: FDA-Public Use
  Company Number: CA-ABBOTT-12P-028-0943522-00

PATIENT
  Age: 10 Year
  Sex: Female
  Weight: 11.4 kg

DRUGS (5)
  1. TOPIRAMATE [Suspect]
     Indication: CONVULSION
     Dosage: 25 MG A.M, 12.5 MG P.M, 25 MG NOCTE
  2. VALPROIC ACID [Suspect]
     Indication: CONVULSION
     Dosage: 125 MD A.M, 62.5 MG P.M, 125 MG NOCTE
  3. LANSOPRAZOLE [Concomitant]
     Indication: PRODUCT USED FOR UNKNOWN INDICATION
  4. CALCIUM CARBONATE [Concomitant]
     Indication: PRODUCT USED FOR UNKNOWN INDICATION
  5. L-CARNITINE [Concomitant]
     Indication: PRODUCT USED FOR UNKNOWN INDICATION

REACTIONS (3)
  - FANCONI SYNDROME [None]
  - HYPOPHOSPHATAEMIC RICKETS [None]
  - NEPHROCALCINOSIS [None]
